FAERS Safety Report 6136456-6 (Version None)
Quarter: 2009Q1

REPORT INFORMATION
  Report Type: 
  Country: None (occurrence: None)
  Receive Date: 20090330
  Receipt Date: 20090320
  Transmission Date: 20090719
  Serious: Yes (Other)
  Sender: FDA-Public Use
  Company Number: AU-AMGEN-QUU339540

PATIENT
  Sex: Female

DRUGS (9)
  1. NEULASTA [Suspect]
     Indication: CHEMOTHERAPY
     Route: 065
  2. HERCEPTIN [Suspect]
     Route: 042
     Dates: start: 20080618
  3. AMOXIL [Concomitant]
  4. AUGMENTIN '125' [Concomitant]
  5. CARBOPLATIN [Concomitant]
  6. CEPHALEXIN [Concomitant]
  7. DOCETAXEL [Concomitant]
     Dates: start: 20080521, end: 20080910
  8. GRANISETRON [Concomitant]
  9. TAXOTERE [Concomitant]

REACTIONS (6)
  - ANTINUCLEAR ANTIBODY INCREASED [None]
  - ARTHRALGIA [None]
  - GRANULOMA [None]
  - INFLAMMATION [None]
  - JOINT STIFFNESS [None]
  - SCAR [None]
